FAERS Safety Report 16907336 (Version 2)
Quarter: 2019Q4

REPORT INFORMATION
  Report Type: Spontaneous
  Country: US (occurrence: US)
  Receive Date: 20191011
  Receipt Date: 20191108
  Transmission Date: 20200122
  Serious: Yes (Hospitalization)
  Sender: FDA-Public Use
  Company Number: US-SUNOVION-2019SUN004167

PATIENT
  Age: 77 Year
  Sex: Female

DRUGS (1)
  1. LONHALA MAGNAIR [Suspect]
     Active Substance: GLYCOPYRROLATE
     Dosage: 25 ?G/ ML
     Route: 055

REACTIONS (4)
  - Malaise [Unknown]
  - Chronic obstructive pulmonary disease [Unknown]
  - Asthenia [Unknown]
  - Fear [Unknown]
